FAERS Safety Report 5890238-9 (Version None)
Quarter: 2008Q3

REPORT INFORMATION
  Report Type: 
  Country: None (occurrence: None)
  Receive Date: 20080919
  Receipt Date: 20080911
  Transmission Date: 20090109
  Serious: Yes (Other)
  Sender: FDA-Public Use
  Company Number: US-PFIZER INC-2008076790

PATIENT
  Sex: Female

DRUGS (2)
  1. NORVASC [Suspect]
     Indication: HYPERTENSION
     Route: 048
  2. PRESERVISION SOFTGELS WITH LUTEIN [Suspect]
     Indication: VITAMIN SUPPLEMENTATION
     Route: 048
     Dates: start: 20080910

REACTIONS (4)
  - DYSPEPSIA [None]
  - LACTOSE INTOLERANCE [None]
  - MACULAR DEGENERATION [None]
  - NEUROPATHY PERIPHERAL [None]
